FAERS Safety Report 5209352-6 (Version None)
Quarter: 2006Q4

REPORT INFORMATION
  Report Type: 
  Country: None (occurrence: None)
  Receive Date: 20061101
  Receipt Date: 20060804
  Transmission Date: 20070319
  Serious: No
  Sender: FDA-Public Use
  Company Number: SPVI-2006-00372

PATIENT
  Age: 76 Year
  Sex: Male
  Weight: 97 kg

DRUGS (6)
  1. FOSRENOL (LANTHANUM CARBONATE)TABLETS CHEWABLE [Suspect]
     Indication: HYPERPHOSPHATAEMIA
     Dosage: 1000 MG, 3X/DAY;TID,
     Dates: start: 20060701, end: 20060801
  2. REQUIP [Concomitant]
  3. COUMADIN /00627701/(COUMARIN) [Concomitant]
  4. NEXIUM /01479302/ (ESOMEPRAZOLE MAGNESIUM) [Concomitant]
  5. THALIDOMIDE [Concomitant]
  6. RENAL CAPS [Concomitant]

REACTIONS (2)
  - BLOOD PRESSURE DECREASED [None]
  - DIZZINESS [None]
